FAERS Safety Report 5951032-3 (Version None)
Quarter: 2008Q4

REPORT INFORMATION
  Report Type: 
  Country: None (occurrence: None)
  Receive Date: 20081110
  Receipt Date: 20081030
  Transmission Date: 20090506
  Serious: Yes (Other)
  Sender: FDA-Public Use
  Company Number: 1-16702201

PATIENT
  Age: 58 Year
  Sex: Male
  Weight: 80.2867 kg

DRUGS (4)
  1. CYCLOBENZAPRINE [Suspect]
     Indication: HEADACHE
     Dosage: 5 MG THREE TIMES DAILY, ORAL
     Route: 048
     Dates: start: 20080908, end: 20080926
  2. CYCLOBENZAPRINE [Suspect]
     Indication: MUSCLE SPASMS
     Dosage: 5 MG THREE TIMES DAILY, ORAL
     Route: 048
     Dates: start: 20080908, end: 20080926
  3. CYCLOBENZAPRINE [Suspect]
     Indication: NERVE COMPRESSION
     Dosage: 5 MG THREE TIMES DAILY, ORAL
     Route: 048
     Dates: start: 20080908, end: 20080926
  4. BUFFERIN [Concomitant]

REACTIONS (5)
  - ACTIVITIES OF DAILY LIVING IMPAIRED [None]
  - EYE DISORDER [None]
  - IMPAIRED DRIVING ABILITY [None]
  - VISION BLURRED [None]
  - VITH NERVE PARALYSIS [None]
